FAERS Safety Report 8914238 (Version 1)
Quarter: 2012Q4

REPORT INFORMATION
  Report Type: 
  Country: CA (occurrence: CA)
  Receive Date: 20121119
  Receipt Date: 20121119
  Transmission Date: 20130627
  Serious: Yes (Other)
  Sender: FDA-Public Use
  Company Number: CA-ASTRAZENECA-2012SE82234

PATIENT
  Age: 65 Year
  Sex: Female

DRUGS (5)
  1. CRESTOR [Suspect]
     Indication: HYPERCHOLESTEROLAEMIA
     Route: 048
  2. CITALOPRAM [Concomitant]
  3. CLONAZEPAM [Concomitant]
  4. SEROQUEL [Concomitant]
  5. RISEDRONATE [Concomitant]

REACTIONS (1)
  - Alopecia [Unknown]
